FAERS Safety Report 18001866 (Version 1)
Quarter: 2020Q3

REPORT INFORMATION
  Report Type: Spontaneous
  Country: DE (occurrence: DE)
  Receive Date: 20200709
  Receipt Date: 20200709
  Transmission Date: 20201103
  Serious: Yes (Hospitalization, Other)
  Sender: FDA-Public Use
  Company Number: DE-MYLANLABS-2020M1061274

PATIENT
  Age: 84 Year
  Sex: Female
  Weight: 97 kg

DRUGS (9)
  1. DIHYDRALAZINE [Concomitant]
     Active Substance: DIHYDRALAZINE
     Indication: PRODUCT USED FOR UNKNOWN INDICATION
     Dosage: 25 MILLIGRAM, QD (25 MG, QD (1?0?0))
  2. OMEPRAZOLE. [Concomitant]
     Active Substance: OMEPRAZOLE
     Indication: PRODUCT USED FOR UNKNOWN INDICATION
     Dosage: 40 MILLIGRAM, QD (40 MG, QD (1?0?0))
  3. AMLODIPINE [Concomitant]
     Active Substance: AMLODIPINE BESYLATE
     Indication: PRODUCT USED FOR UNKNOWN INDICATION
     Dosage: 10 MILLIGRAM, QD (5 MG, BID (1?0?1))
  4. RAMIPRIL. [Concomitant]
     Active Substance: RAMIPRIL
     Indication: PRODUCT USED FOR UNKNOWN INDICATION
     Dosage: 10 MILLIGRAM, QD (5 MG, BID (1?0?1))
  5. TORASEMIDE [Concomitant]
     Active Substance: TORSEMIDE
     Indication: PRODUCT USED FOR UNKNOWN INDICATION
     Dosage: 5 MILLIGRAM, QD (2.5 MG, BID (1?1?0))
  6. TAMOXIFEN [Concomitant]
     Active Substance: TAMOXIFEN
     Indication: BREAST CANCER
     Dosage: 20 MILLIGRAM, QD (20 MG, QD (1?0?0))
  7. AMIODARONE [Suspect]
     Active Substance: AMIODARONE
     Indication: PRODUCT USED FOR UNKNOWN INDICATION
     Dosage: UNK
  8. RIVAROXABAN [Suspect]
     Active Substance: RIVAROXABAN
     Indication: ATRIAL FIBRILLATION
     Dosage: NACH INR
     Route: 048
     Dates: start: 201806, end: 20191113
  9. L?THYROXINE                        /00068001/ [Concomitant]
     Active Substance: LEVOTHYROXINE
     Indication: PRODUCT USED FOR UNKNOWN INDICATION
     Dosage: 200 MICROGRAM, QD (200 UG, QD (1?0?0))

REACTIONS (21)
  - Cerebral atrophy [Unknown]
  - Dysmetria [Unknown]
  - Ventricular extrasystoles [Unknown]
  - Muscular weakness [Unknown]
  - Bradycardia [Unknown]
  - Brain stem infarction [Unknown]
  - Atrial fibrillation [Unknown]
  - Nausea [Unknown]
  - Diplopia [Unknown]
  - Headache [Unknown]
  - Subgaleal haematoma [Unknown]
  - Hemiparesis [Unknown]
  - Fall [Unknown]
  - Dysphagia [Unknown]
  - Vomiting [Unknown]
  - Dysarthria [Unknown]
  - Arteriosclerosis [Unknown]
  - Supraventricular extrasystoles [Unknown]
  - Hypertension [Recovering/Resolving]
  - Vascular malformation [Unknown]
  - Cerebral haemorrhage [Recovering/Resolving]

NARRATIVE: CASE EVENT DATE: 201911
